FAERS Safety Report 5479224-0 (Version None)
Quarter: 2007Q4

REPORT INFORMATION
  Report Type: 
  Country: None (occurrence: None)
  Receive Date: 20071008
  Receipt Date: 20070926
  Transmission Date: 20080405
  Serious: Yes (Other)
  Sender: FDA-Public Use
  Company Number: US-JNJFOC-20070906021

PATIENT
  Sex: Male
  Weight: 19.96 kg

DRUGS (4)
  1. CONCERTA [Suspect]
     Indication: BIPOLAR DISORDER
     Route: 048
  2. CONCERTA [Suspect]
     Indication: ATTENTION DEFICIT/HYPERACTIVITY DISORDER
     Route: 048
  3. DEPAKOTE [Concomitant]
  4. GUANFACINE HYDROCHLORIDE [Concomitant]

REACTIONS (7)
  - ABNORMAL BEHAVIOUR [None]
  - CONSTIPATION [None]
  - DECREASED APPETITE [None]
  - DROOLING [None]
  - HALLUCINATION [None]
  - MUSCLE DISORDER [None]
  - RESTLESSNESS [None]
